FAERS Safety Report 12174345 (Version 1)
Quarter: 2016Q1

REPORT INFORMATION
  Report Type: Report from Study
  Country: US (occurrence: US)
  Receive Date: 20160312
  Receipt Date: 20160312
  Transmission Date: 20160526
  Serious: Yes (Death, Other)
  Sender: FDA-Public Use
  Company Number: US-ACCORD-038681

PATIENT
  Age: 18 Year

DRUGS (4)
  1. ARA-C (DEPOCYTE) [Concomitant]
     Indication: BURKITT^S LYMPHOMA
     Dates: start: 201305
  2. CYTARABINE/CYTARABINE HYDROCHLORIDE/CYTARABINE OCFOSFATE [Concomitant]
     Indication: BURKITT^S LYMPHOMA
     Dosage: ALTERNATING THERAPY ON DAYS 2 AND 7 OF EACH HYPER-CVAD COURSE FOR A TOTAL OF 8 OR 12 DOSES
     Dates: start: 201305
  3. METHOTREXATE [Suspect]
     Active Substance: METHOTREXATE
     Indication: BURKITT^S LYMPHOMA
     Dosage: ALSO RECEIVED CYCLICAL FROM MAY-2013.?HYPER-CVAD (AUGMENTED REGIME STARTED IN CYCLE 3)
     Route: 037
     Dates: start: 20130904, end: 20131120
  4. RITUXIMAB [Concomitant]
     Active Substance: RITUXIMAB
     Indication: BURKITT^S LYMPHOMA
     Dosage: 4 CYCLES
     Dates: start: 201305

REACTIONS (2)
  - Myelopathy [Not Recovered/Not Resolved]
  - Multiple organ dysfunction syndrome [Fatal]

NARRATIVE: CASE EVENT DATE: 20140120
